FAERS Safety Report 5726856-8 (Version None)
Quarter: 2008Q2

REPORT INFORMATION
  Report Type: 
  Country: None (occurrence: None)
  Receive Date: 20080502
  Receipt Date: 20080424
  Transmission Date: 20081010
  Serious: Yes (Other)
  Sender: FDA-Public Use
  Company Number: US-PFIZER INC-2008035928

PATIENT
  Sex: Female
  Weight: 76.818 kg

DRUGS (11)
  1. LIPITOR [Suspect]
     Indication: BLOOD CHOLESTEROL INCREASED
  2. ACETYLSALICYLIC ACID SRT [Concomitant]
  3. ZOLPIDEM TARTRATE [Concomitant]
  4. CYMBALTA [Concomitant]
  5. KLONOPIN [Concomitant]
  6. OXYCODONE HCL [Concomitant]
  7. LISINOPRIL [Concomitant]
  8. METFORMIN HYDROCHLORIDE/SITAGLIPTIN [Concomitant]
  9. ZANTAC [Concomitant]
  10. INSULIN GLARGINE [Concomitant]
  11. ATENOLOL [Concomitant]

REACTIONS (2)
  - DISCOMFORT [None]
  - PAIN [None]
